FAERS Safety Report 7595337-1 (Version None)
Quarter: 2011Q3

REPORT INFORMATION
  Report Type: 
  Country: None (occurrence: None)
  Receive Date: 20110707
  Receipt Date: 20110628
  Transmission Date: 20111222
  Serious: Yes (Disabling, Other)
  Sender: FDA-Public Use
  Company Number: JP-SANOFI-AVENTIS-2011SA041269

PATIENT
  Sex: Male

DRUGS (5)
  1. OXALIPLATIN [Suspect]
     Indication: RECTAL CANCER
     Route: 041
     Dates: start: 20101213, end: 20110412
  2. AVASTIN [Concomitant]
     Indication: RECTAL CANCER
     Route: 041
     Dates: start: 20101213, end: 20110412
  3. LEUCOVORIN CALCIUM [Concomitant]
     Indication: RECTAL CANCER
     Route: 041
     Dates: start: 20101213, end: 20110412
  4. FLUOROURACIL [Concomitant]
     Route: 041
     Dates: end: 20110412
  5. FLUOROURACIL [Concomitant]
     Indication: RECTAL CANCER
     Route: 040
     Dates: start: 20101213

REACTIONS (2)
  - PALMAR-PLANTAR ERYTHRODYSAESTHESIA SYNDROME [None]
  - GASTROINTESTINAL NECROSIS [None]
